FAERS Safety Report 15357576 (Version 1)
Quarter: 2018Q3

REPORT INFORMATION
  Report Type: Spontaneous
  Country: US (occurrence: US)
  Receive Date: 20180906
  Receipt Date: 20180906
  Transmission Date: 20181010
  Serious: No
  Sender: FDA-Public Use
  Company Number: US-PTC THERAPEUTICS, INC.-US-2018PTC000651

PATIENT

DRUGS (1)
  1. EMFLAZA [Suspect]
     Active Substance: DEFLAZACORT
     Indication: MUSCULAR DYSTROPHY
     Dosage: 12 MG, QD
     Route: 048

REACTIONS (5)
  - Vertigo [Unknown]
  - Headache [Unknown]
  - Nasopharyngitis [Unknown]
  - Photophobia [Unknown]
  - Vomiting [Unknown]
